FAERS Safety Report 8959448 (Version 2)
Quarter: 2013Q1

REPORT INFORMATION
  Report Type: Report from Study
  Country: IT (occurrence: IT)
  Receive Date: 20121212
  Receipt Date: 20130121
  Transmission Date: 20140127
  Serious: Yes (Hospitalization)
  Sender: FDA-Public Use
  Company Number: IT-SHIRE-ALL1-2012-06116

PATIENT
  Age: 19 Year
  Sex: Male
  Weight: 29 kg

DRUGS (4)
  1. IDURSULFASE [Suspect]
     Indication: MUCOPOLYSACCHARIDOSIS II
     Dosage: 14.5 MG, 1X/WEEK
     Route: 041
     Dates: start: 20080117
  2. LAMOTRIGINE [Concomitant]
     Indication: NERVOUS SYSTEM DISORDER
     Dosage: 175.0 MG, 1X/DAY:QD
     Route: 048
     Dates: start: 200912
  3. NITRAZEPAM [Concomitant]
     Indication: SLEEP DISORDER
     Dosage: 1.25 MG, 1X/DAY:QD
     Route: 048
     Dates: start: 200811
  4. VALPROIC ACID [Concomitant]
     Indication: NERVOUS SYSTEM DISORDER
     Dosage: 200.0 MG, 2X/DAY:BID
     Route: 048
     Dates: start: 200811

REACTIONS (1)
  - Bronchitis [Recovered/Resolved]
